FAERS Safety Report 6725197-X (Version None)
Quarter: 2010Q2

REPORT INFORMATION
  Report Type: 
  Country: None (occurrence: None)
  Receive Date: 20100514
  Receipt Date: 20100507
  Transmission Date: 20101027
  Serious: Yes (Hospitalization, Disabling, Other)
  Sender: FDA-Public Use
  Company Number: PHHY2010CA28010

PATIENT
  Sex: Female

DRUGS (5)
  1. ACLASTA/ZOLEDRONATE T29581+A+ [Suspect]
     Indication: OSTEOPOROSIS
     Dosage: 5 MG IV YEARLY
     Route: 042
     Dates: start: 20100115
  2. CALCIUM [Concomitant]
     Dosage: 1000 MG/DAY
  3. VITAMIN D [Concomitant]
     Dosage: 800 U/DAY
  4. SYNTHROID [Concomitant]
     Dosage: 0.05 MG/DAY
  5. VITAMIN B-12 [Concomitant]

REACTIONS (2)
  - FALL [None]
  - HIP FRACTURE [None]
